FAERS Safety Report 5607679-7 (Version None)
Quarter: 2008Q1

REPORT INFORMATION
  Report Type: 
  Country: None (occurrence: None)
  Receive Date: 20080128
  Receipt Date: 20080128
  Transmission Date: 20080703
  Serious: Yes (Life-Threatening, Disabling, Other)
  Sender: FDA-Public Use
  Company Number: None

PATIENT
  Age: 41 Year
  Sex: Female
  Weight: 62.1428 kg

DRUGS (4)
  1. VYTORIN [Suspect]
     Indication: BLOOD CHOLESTEROL INCREASED
     Dosage: 1 TABLET NIGHTLY PO
     Route: 048
     Dates: start: 20020102, end: 20071020
  2. VYTORIN [Suspect]
     Indication: CORONARY ARTERY DISEASE
     Dosage: 1 TABLET NIGHTLY PO
     Route: 048
     Dates: start: 20020102, end: 20071020
  3. COENZYME COQ10 [Concomitant]
  4. PHYSICAL THERAPY [Concomitant]

REACTIONS (16)
  - ABASIA [None]
  - BACK PAIN [None]
  - CARDIAC DISORDER [None]
  - DYSPNOEA [None]
  - FATIGUE [None]
  - FLUID RETENTION [None]
  - HYPERAESTHESIA [None]
  - INFLAMMATION [None]
  - MUSCLE INJURY [None]
  - MUSCLE SPASMS [None]
  - MUSCULAR WEAKNESS [None]
  - MYALGIA [None]
  - PARAESTHESIA [None]
  - SWELLING [None]
  - SWELLING FACE [None]
  - WEIGHT INCREASED [None]
